FAERS Safety Report 4872287-2 (Version None)
Quarter: 2005Q4

REPORT INFORMATION
  Report Type: 
  Country: None (occurrence: None)
  Receive Date: 20051201
  Receipt Date: 20050731
  Transmission Date: 20060501
  Serious: No
  Sender: FDA-Public Use
  Company Number: 2005PV000792

PATIENT
  Age: 67 Year
  Sex: Male
  Weight: 76.2043 kg

DRUGS (10)
  1. BYETTA [Suspect]
     Indication: DIABETES MELLITUS
     Dosage: 5 MCG;BID;SC
     Route: 058
     Dates: start: 20050718
  2. HYDROCHLOROTHIAZIDE [Concomitant]
  3. DYNACIRC [Concomitant]
  4. AVAPRO [Concomitant]
  5. LIPITOR [Concomitant]
  6. PREVACID [Concomitant]
  7. HORMONE REPLACEMENT [Concomitant]
  8. MULTIVITAMIN [Concomitant]
  9. LANTUS [Concomitant]
  10. NOVOLOG [Concomitant]

REACTIONS (3)
  - BLOOD GLUCOSE INCREASED [None]
  - HEADACHE [None]
  - WEIGHT DECREASED [None]
